FAERS Safety Report 6949531-0 (Version None)
Quarter: 2010Q3

REPORT INFORMATION
  Report Type: 
  Country: None (occurrence: None)
  Receive Date: 20100828
  Receipt Date: 20091215
  Transmission Date: 20110219
  Serious: No
  Sender: FDA-Public Use
  Company Number: US-ABBOTT-09P-163-0615625-00

PATIENT
  Age: 42 Year
  Sex: Female

DRUGS (2)
  1. NIASPAN [Suspect]
     Indication: BLOOD TRIGLYCERIDES INCREASED
     Route: 048
     Dates: start: 20091001
  2. LORAZEPAM [Concomitant]
     Indication: PANIC ATTACK
     Route: 048

REACTIONS (13)
  - AGITATION [None]
  - BURNING SENSATION [None]
  - DIZZINESS [None]
  - DYSPNOEA [None]
  - ERYTHEMA [None]
  - FEAR [None]
  - HYPERHIDROSIS [None]
  - HYPERVENTILATION [None]
  - HYPOAESTHESIA [None]
  - INAPPROPRIATE SCHEDULE OF DRUG ADMINISTRATION [None]
  - PALPITATIONS [None]
  - PANIC ATTACK [None]
  - SWELLING FACE [None]
